FAERS Safety Report 4924680-7 (Version None)
Quarter: 2006Q1

REPORT INFORMATION
  Report Type: 
  Country: None (occurrence: None)
  Receive Date: 20060222
  Receipt Date: 20060203
  Transmission Date: 20060701
  Serious: Yes (Life-Threatening, Hospitalization)
  Sender: FDA-Public Use
  Company Number: 222186

PATIENT
  Age: 56 Year
  Sex: Female
  Weight: 66 kg

DRUGS (6)
  1. HERCEPTIN [Suspect]
     Indication: BREAST CANCER METASTATIC
     Dosage: 4 MG/KG, SINGLE, INTRAVENOUS;  132 MG, 1/WEEK, INTRAVENOUS
     Route: 042
     Dates: end: 20060130
  2. HERCEPTIN [Suspect]
     Indication: BREAST CANCER METASTATIC
     Dosage: 4 MG/KG, SINGLE, INTRAVENOUS;  132 MG, 1/WEEK, INTRAVENOUS
     Route: 042
     Dates: start: 20060116
  3. METHOTREXATE [Suspect]
     Indication: BREAST CANCER METASTATIC
     Dosage: 70 MG, INTRAVENOUS
     Route: 042
     Dates: start: 20060116, end: 20060123
  4. FLUOROURACIL [Suspect]
     Indication: BREAST CANCER METASTATIC
     Dosage: 600 MG/M2,  INTRAVENOUS
     Route: 042
     Dates: start: 20060116, end: 20060123
  5. CYCLOPHOSPHAMIDE [Suspect]
     Indication: BREAST CANCER METASTATIC
     Dosage: 600 MG/M2, 1/WEEK, INTRAVENOUS
     Route: 042
     Dates: start: 20060116, end: 20060123
  6. VERAPAMIL [Concomitant]

REACTIONS (6)
  - BRONCHOPNEUMONIA [None]
  - FEBRILE NEUTROPENIA [None]
  - GENERAL PHYSICAL HEALTH DETERIORATION [None]
  - MALIGNANT NEOPLASM PROGRESSION [None]
  - METASTASES TO LIVER [None]
  - PLEURAL EFFUSION [None]
